FAERS Safety Report 4361731-5 (Version None)
Quarter: 2004Q2

REPORT INFORMATION
  Report Type: 
  Country: None (occurrence: None)
  Receive Date: 20040521
  Receipt Date: 20040303
  Transmission Date: 20050107
  Serious: Yes (Hospitalization)
  Sender: FDA-Public Use
  Company Number: US-GLAXOSMITHKLINE-A0501037A

PATIENT
  Sex: Female
  Weight: 58.6 kg

DRUGS (1)
  1. WELLBUTRIN [Suspect]
     Indication: DEPRESSION
     Route: 048
     Dates: start: 20040206, end: 20040224

REACTIONS (5)
  - AMNESIA [None]
  - CONVULSION [None]
  - TONGUE BITING [None]
  - TREMOR [None]
  - URINARY INCONTINENCE [None]
